FAERS Safety Report 8557584-1 (Version None)
Quarter: 2012Q3

REPORT INFORMATION
  Report Type: 
  Country: None (occurrence: None)
  Receive Date: 20120801
  Receipt Date: 20120718
  Transmission Date: 20120928
  Serious: Yes (Death)
  Sender: FDA-Public Use
  Company Number: DK-WATSON-2012-13212

PATIENT
  Age: 78 Year
  Sex: Female

DRUGS (1)
  1. METFORMIN HYDROCHLORIDE [Suspect]
     Indication: DIABETES MELLITUS
     Dosage: 3 G, DAILY
     Route: 065

REACTIONS (4)
  - ACUTE MYOCARDIAL INFARCTION [None]
  - ATRIAL FIBRILLATION [None]
  - BRADYCARDIA [None]
  - LACTIC ACIDOSIS [None]
